FAERS Safety Report 4896588-7 (Version None)
Quarter: 2005Q4

REPORT INFORMATION
  Report Type: 
  Country: None (occurrence: None)
  Receive Date: 20051223
  Receipt Date: 20051013
  Transmission Date: 20060501
  Serious: Yes (Hospitalization)
  Sender: FDA-Public Use
  Company Number: 421125

PATIENT
  Age: 53 Year
  Sex: Male
  Weight: 110.2 kg

DRUGS (12)
  1. COPEGUS [Suspect]
     Indication: HEPATITIS C
     Dosage: ORAL
     Route: 048
     Dates: start: 20020402, end: 20051015
  2. PEG-INTRON [Suspect]
     Indication: HEPATITIS C
     Dates: start: 20020402, end: 20051015
  3. ALCOHOL (ALCOHOL) [Concomitant]
  4. MARIJUANA (CANNABIS) [Concomitant]
  5. COCAINE (COCAINE) [Concomitant]
  6. ELAVIL [Concomitant]
  7. ACETAMINOPHEN/HYDROCODONE BITARTRATE (HYDROCODONE BITARTRATE/PARACETAM [Concomitant]
  8. LISINOPRIL [Concomitant]
  9. POTASSIUM SUPPLEMENT (POTASSIUM SUPPLEMENT) [Concomitant]
  10. SOMA [Concomitant]
  11. SULINDAC [Concomitant]
  12. XANAX [Concomitant]

REACTIONS (6)
  - AGGRESSION [None]
  - ALCOHOLISM [None]
  - CONFUSIONAL STATE [None]
  - DRUG DEPENDENCE [None]
  - HALLUCINATION, AUDITORY [None]
  - PARANOIA [None]
